FAERS Safety Report 21976837 (Version 2)
Quarter: 2023Q1

REPORT INFORMATION
  Report Type: Spontaneous
  Country: US (occurrence: None)
  Receive Date: 20230210
  Receipt Date: 20230308
  Transmission Date: 20230418
  Serious: Yes (Other)
  Sender: FDA-Public Use
  Company Number: 2023A029812

PATIENT
  Age: 25792 Day
  Sex: Male
  Weight: 97.1 kg

DRUGS (25)
  1. NEXIUM [Suspect]
     Active Substance: ESOMEPRAZOLE MAGNESIUM
     Route: 048
     Dates: start: 20040715
  2. NEXIUM [Suspect]
     Active Substance: ESOMEPRAZOLE MAGNESIUM
     Route: 048
     Dates: start: 20080401
  3. NEXIUM [Suspect]
     Active Substance: ESOMEPRAZOLE MAGNESIUM
     Route: 048
     Dates: start: 20091001
  4. NEXIUM [Suspect]
     Active Substance: ESOMEPRAZOLE MAGNESIUM
     Route: 048
     Dates: start: 20120919
  5. NEXIUM [Suspect]
     Active Substance: ESOMEPRAZOLE MAGNESIUM
     Route: 048
     Dates: start: 20140424
  6. NEXIUM [Suspect]
     Active Substance: ESOMEPRAZOLE MAGNESIUM
     Dates: start: 20200819
  7. ALBUTEROL [Concomitant]
     Active Substance: ALBUTEROL
     Dates: start: 20200819
  8. GABAPENTIN [Concomitant]
     Active Substance: GABAPENTIN
     Dates: start: 20200819
  9. METOPROLOL SUCCINATE [Concomitant]
     Active Substance: METOPROLOL SUCCINATE
     Dates: start: 20200819
  10. TIOTROPIUM BROMIDE [Concomitant]
     Active Substance: TIOTROPIUM BROMIDE
     Dates: start: 20200819
  11. OXYCODONE [Concomitant]
     Active Substance: OXYCODONE
     Dates: start: 20200819
  12. RIVAROXABAN [Concomitant]
     Active Substance: RIVAROXABAN
     Dates: start: 20200819
  13. CARAFATE [Concomitant]
     Active Substance: SUCRALFATE
     Dates: start: 20200819
  14. TYLENOL [Concomitant]
     Active Substance: ACETAMINOPHEN
     Dates: start: 20200819
  15. SODIUM CHLORIDE [Concomitant]
     Active Substance: SODIUM CHLORIDE
     Dates: start: 20200819
  16. GLYBURIDE [Concomitant]
     Active Substance: GLYBURIDE
     Dates: start: 20100510
  17. TIKOSYN [Concomitant]
     Active Substance: DOFETILIDE
     Dates: start: 20150607
  18. TRADJENTA [Concomitant]
     Active Substance: LINAGLIPTIN
     Dates: start: 20190316
  19. METFORMIN [Concomitant]
     Active Substance: METFORMIN HYDROCHLORIDE
     Dates: start: 20190221
  20. MAGNESIUM OXIDE [Concomitant]
     Active Substance: MAGNESIUM OXIDE
     Dates: start: 20190504
  21. VITAMIN D2 [Concomitant]
     Active Substance: ERGOCALCIFEROL
     Dates: start: 20190709
  22. AMLODIPINE BESYLATE [Concomitant]
     Active Substance: AMLODIPINE BESYLATE
     Dates: start: 20200525
  23. CYCLOBENZAPRINE [Concomitant]
     Active Substance: CYCLOBENZAPRINE
     Dates: start: 20200615
  24. GLIPIZIDE [Concomitant]
     Active Substance: GLIPIZIDE
     Dates: start: 20200225
  25. MEGESTROL ACETATE [Concomitant]
     Active Substance: MEGESTROL ACETATE
     Dates: start: 20200924

REACTIONS (2)
  - Gastric neuroendocrine carcinoma [Unknown]
  - Metastases to liver [Unknown]

NARRATIVE: CASE EVENT DATE: 20200819
